FAERS Safety Report 13679476 (Version 8)
Quarter: 2021Q2

REPORT INFORMATION
  Report Type: Spontaneous
  Country: JP (occurrence: JP)
  Receive Date: 20170622
  Receipt Date: 20210611
  Transmission Date: 20210716
  Serious: Yes (Hospitalization, Other)
  Sender: FDA-Public Use
  Company Number: JP-UNITED THERAPEUTICS-UNT-2017-006524

PATIENT
  Age: 31 Year
  Sex: Female
  Weight: 53 kg

DRUGS (4)
  1. REMODULIN [Suspect]
     Active Substance: TREPROSTINIL
     Indication: PULMONARY ARTERIAL HYPERTENSION
     Dosage: 0.031 ?G/KG, CONTINUING
     Route: 041
     Dates: start: 20161118, end: 20170501
  2. REMODULIN [Suspect]
     Active Substance: TREPROSTINIL
     Indication: CONNECTIVE TISSUE DISORDER
     Dosage: UNK UNK, CONTINUING (DOSING RATE OF 14 MCL/HR)
     Route: 058
     Dates: start: 20170508, end: 201802
  3. REMODULIN [Suspect]
     Active Substance: TREPROSTINIL
     Indication: PULMONARY ARTERIAL HYPERTENSION
     Dosage: UNK UNK, CONTINUING (DOSING RATE OF 1.8 MCL/HR)
     Route: 058
     Dates: start: 20170501
  4. REMODULIN [Suspect]
     Active Substance: TREPROSTINIL
     Indication: CONNECTIVE TISSUE DISORDER
     Dosage: UNK UNK, CONTINUING
     Route: 041
     Dates: start: 2018, end: 202105

REACTIONS (3)
  - Injection site pain [Unknown]
  - Device related sepsis [Recovered/Resolved]
  - Pseudomonas infection [Unknown]

NARRATIVE: CASE EVENT DATE: 20170421
